FAERS Safety Report 12134043 (Version 1)
Quarter: 2016Q1

REPORT INFORMATION
  Report Type: Spontaneous
  Country: JP (occurrence: JP)
  Receive Date: 20160301
  Receipt Date: 20160301
  Transmission Date: 20160526
  Serious: Yes (Hospitalization)
  Sender: FDA-Public Use
  Company Number: JP-009507513-1602JPN012620

PATIENT

DRUGS (1)
  1. JANUVIA [Suspect]
     Active Substance: SITAGLIPTIN PHOSPHATE
     Dosage: DAILY DOSE UNKNOWN
     Route: 048

REACTIONS (2)
  - Pneumonia aspiration [Unknown]
  - Pneumonia [Unknown]

NARRATIVE: CASE EVENT DATE: 20160225
